FAERS Safety Report 11864696 (Version 1)
Quarter: 2015Q4

REPORT INFORMATION
  Report Type: Spontaneous
  Country: CH (occurrence: CH)
  Receive Date: 20151223
  Receipt Date: 20151223
  Transmission Date: 20160305
  Serious: Yes (Other)
  Sender: FDA-Public Use
  Company Number: CH-TEVA-619592ISR

PATIENT
  Age: 72 Year
  Sex: Male

DRUGS (1)
  1. AMIODARON-MEPHA 200 [Suspect]
     Active Substance: AMIODARONE
     Indication: ARRHYTHMIA
     Dosage: COMMENT IN STRUCTURED FIELD: VERY RARE: MYOPATHY WHEN GIVEN ORALLY
     Route: 065

REACTIONS (4)
  - Balance disorder [Unknown]
  - Pain [Unknown]
  - Visual impairment [Unknown]
  - Disturbance in attention [Unknown]

NARRATIVE: CASE EVENT DATE: 201407
